FAERS Safety Report 7478671-5 (Version None)
Quarter: 2011Q2

REPORT INFORMATION
  Report Type: 
  Country: None (occurrence: None)
  Receive Date: 20110513
  Receipt Date: 20110511
  Transmission Date: 20111010
  Serious: Yes (Hospitalization)
  Sender: FDA-Public Use
  Company Number: AU-ABBOTT-11P-008-0723654-00

PATIENT

DRUGS (6)
  1. RITONAVIR [Suspect]
     Indication: PRODUCT USED FOR UNKNOWN INDICATION
     Dosage: 1 DOSE UNSPEC
     Dates: start: 20110118, end: 20110131
  2. ATAZANAVIR SULFATE [Suspect]
     Indication: PRODUCT USED FOR UNKNOWN INDICATION
     Dates: start: 20110118, end: 20110131
  3. CIPROFLOXACIN [Suspect]
     Indication: PRODUCT USED FOR UNKNOWN INDICATION
     Dates: start: 20110119, end: 20110131
  4. IV HYDRATION [Concomitant]
     Indication: PRODUCT USED FOR UNKNOWN INDICATION
  5. TRUVADA [Suspect]
     Indication: PRODUCT USED FOR UNKNOWN INDICATION
     Dosage: 1 DOSE UNSPEC 1 TIME
     Route: 048
     Dates: start: 20110118, end: 20110129
  6. CEFTRIAXONE [Suspect]
     Indication: PRODUCT USED FOR UNKNOWN INDICATION
     Dates: start: 20110126

REACTIONS (6)
  - EOSINOPHILIA [None]
  - RENAL TUBULAR NECROSIS [None]
  - RENAL FAILURE ACUTE [None]
  - DIARRHOEA [None]
  - HAEMATURIA [None]
  - ABDOMINAL PAIN [None]
